FAERS Safety Report 7206191-1 (Version None)
Quarter: 2011Q1

REPORT INFORMATION
  Report Type: 
  Country: None (occurrence: None)
  Receive Date: 20110103
  Receipt Date: 20101221
  Transmission Date: 20110831
  Serious: Yes (Other)
  Sender: FDA-Public Use
  Company Number: DE-JNJFOC-20101207966

PATIENT
  Sex: Female
  Weight: 70 kg

DRUGS (6)
  1. PALEXIA RETARD [Suspect]
     Indication: PAIN
     Route: 048
  2. DECORTIN [Concomitant]
     Route: 065
  3. OXYCODON [Concomitant]
     Route: 065
  4. EUTHYROX [Concomitant]
     Route: 065
  5. ASPIRIN [Concomitant]
     Route: 065
  6. CALCIUM + D3 [Concomitant]
     Route: 065

REACTIONS (1)
  - HYPOGLYCAEMIA [None]
